FAERS Safety Report 12329178 (Version 3)
Quarter: 2016Q2

REPORT INFORMATION
  Report Type: Spontaneous
  Country: JP (occurrence: JP)
  Receive Date: 20160503
  Receipt Date: 20160524
  Transmission Date: 20160815
  Serious: Yes (Death, Hospitalization, Other)
  Sender: FDA-Public Use
  Company Number: JP-MDT-ADR-2016-00788

PATIENT
  Age: 22 Year
  Sex: Female
  Weight: 36 kg

DRUGS (2)
  1. GABALON [Suspect]
     Active Substance: BACLOFEN
     Dosage: 124.3 MCG/DAY
     Route: 037
     Dates: start: 20030623, end: 20030623
  2. GABALON [Suspect]
     Active Substance: BACLOFEN
     Dosage: 75 MCG/DAY
     Route: 037
     Dates: start: 20030623, end: 20141228

REACTIONS (4)
  - Pneumonia [Fatal]
  - Muscle spasms [Fatal]
  - Pyrexia [Fatal]
  - Blood pressure decreased [Fatal]
